FAERS Safety Report 25380137 (Version 1)
Quarter: 2025Q2

REPORT INFORMATION
  Report Type: Report from Study
  Country: US (occurrence: US)
  Receive Date: 20250530
  Receipt Date: 20250530
  Transmission Date: 20250717
  Serious: Yes (Hospitalization)
  Sender: ABBVIE
  Company Number: US-ABBVIE-6302746

PATIENT
  Age: 51 Year
  Sex: Female

DRUGS (1)
  1. QULIPTA [Suspect]
     Active Substance: ATOGEPANT
     Indication: Product used for unknown indication
     Route: 048
     Dates: start: 20240514

REACTIONS (7)
  - Septic shock [Recovered/Resolved with Sequelae]
  - Ligament rupture [Recovered/Resolved with Sequelae]
  - Nephrolithiasis [Recovered/Resolved with Sequelae]
  - Respiratory failure [Recovered/Resolved with Sequelae]
  - Hepatic enzyme abnormal [Not Recovered/Not Resolved]
  - Hepatic mass [Not Recovered/Not Resolved]
  - Tooth fracture [Recovered/Resolved with Sequelae]

NARRATIVE: CASE EVENT DATE: 20240801
